FAERS Safety Report 7790456-9 (Version None)
Quarter: 2011Q3

REPORT INFORMATION
  Report Type: 
  Country: None (occurrence: None)
  Receive Date: 20110930
  Receipt Date: 20110919
  Transmission Date: 20111222
  Serious: Yes (Other)
  Sender: FDA-Public Use
  Company Number: US-SANOFI-AVENTIS-2011SA057713

PATIENT
  Age: 75 Year
  Sex: Male

DRUGS (3)
  1. HUMALOG [Concomitant]
     Route: 058
  2. LANTUS [Suspect]
     Indication: TYPE 2 DIABETES MELLITUS
     Dosage: DOSE:105 UNIT(S)
     Route: 058
  3. SOLOSTAR [Suspect]
     Indication: TYPE 2 DIABETES MELLITUS

REACTIONS (4)
  - RETINAL HAEMORRHAGE [None]
  - GLYCOSYLATED HAEMOGLOBIN INCREASED [None]
  - VISUAL IMPAIRMENT [None]
  - BLOOD GLUCOSE INCREASED [None]
